FAERS Safety Report 9370099 (Version 3)
Quarter: 2013Q4

REPORT INFORMATION
  Report Type: Spontaneous
  Country: CA (occurrence: CA)
  Receive Date: 20130626
  Receipt Date: 20131028
  Transmission Date: 20140711
  Serious: Yes (Life-Threatening, Disabling, Other)
  Sender: FDA-Public Use
  Company Number: CA-CELGENEUS-028-21880-13063669

PATIENT
  Age: 87 Year
  Sex: Male
  Weight: 79 kg

DRUGS (17)
  1. REVLIMID [Suspect]
     Indication: PLASMA CELL MYELOMA
     Dosage: 25 MILLIGRAM
     Route: 048
     Dates: start: 200512, end: 200806
  2. REVLIMID [Suspect]
     Dosage: 10 MILLIGRAM
     Route: 048
     Dates: start: 20121206, end: 20130421
  3. REVLIMID [Suspect]
     Dosage: 10 MILLIGRAM
     Route: 048
     Dates: start: 201302, end: 20130421
  4. MELPHALAN [Suspect]
     Indication: PLASMA CELL MYELOMA
     Route: 048
     Dates: start: 200306, end: 200311
  5. MELPHALAN [Suspect]
     Route: 048
     Dates: start: 200312
  6. MELPHALAN [Suspect]
     Route: 048
     Dates: start: 200504, end: 200506
  7. MULTIVITAMINS [Concomitant]
     Indication: PRODUCT USED FOR UNKNOWN INDICATION
     Route: 065
  8. DIGESTIVE ENZYME [Concomitant]
     Indication: PRODUCT USED FOR UNKNOWN INDICATION
     Route: 065
  9. VALACYCLOVIR [Concomitant]
     Indication: PRODUCT USED FOR UNKNOWN INDICATION
     Dosage: 500 MILLIGRAM
     Route: 048
     Dates: start: 20130826
  10. DEXAMETHASONE [Concomitant]
     Indication: NEUTROPENIA
     Route: 065
     Dates: start: 2003, end: 2004
  11. DEXAMETHASONE [Concomitant]
     Route: 048
     Dates: start: 200312
  12. DEXAMETHASONE [Concomitant]
     Route: 048
     Dates: start: 200504, end: 200506
  13. DEXAMETHASONE [Concomitant]
     Route: 048
     Dates: start: 200512
  14. DEXAMETHASONE [Concomitant]
     Route: 048
     Dates: start: 200601, end: 20060301
  15. DEXAMETHASONE [Concomitant]
     Route: 048
     Dates: start: 20060329, end: 200604
  16. DEXAMETHASONE [Concomitant]
     Route: 048
     Dates: start: 200605, end: 200608
  17. DEXAMETHASONE [Concomitant]
     Route: 048
     Dates: start: 200609, end: 200611

REACTIONS (2)
  - Myelodysplastic syndrome [Recovering/Resolving]
  - Epilepsy [Not Recovered/Not Resolved]
